FAERS Safety Report 7445400-0 (Version None)
Quarter: 2011Q2

REPORT INFORMATION
  Report Type: 
  Country: None (occurrence: None)
  Receive Date: 20110427
  Receipt Date: 20110427
  Transmission Date: 20111010
  Serious: Yes (Disabling)
  Sender: FDA-Public Use
  Company Number: None

PATIENT
  Sex: Female
  Weight: 59.1 kg

DRUGS (1)
  1. TAMOXIFEN CITRATE [Suspect]
     Indication: BREAST CANCER
     Dosage: DAILY FOR 6 WEEKS ORAL
     Route: 048
     Dates: start: 20090401, end: 20090501

REACTIONS (2)
  - CHROMATOPSIA [None]
  - DEAFNESS UNILATERAL [None]
